FAERS Safety Report 18490489 (Version 2)
Quarter: 2020Q4

REPORT INFORMATION
  Report Type: Spontaneous
  Country: BE (occurrence: BE)
  Receive Date: 20201111
  Receipt Date: 20201118
  Transmission Date: 20210114
  Serious: Yes (Other)
  Sender: FDA-Public Use
  Company Number: BE-PFIZER INC-2020431646

PATIENT
  Age: 57 Year
  Sex: Male

DRUGS (3)
  1. PYRIDOSTIGMINE [Concomitant]
     Active Substance: PYRIDOSTIGMINE
     Indication: MYASTHENIA GRAVIS
     Dosage: 720 MG
  2. METHYLPREDNISOLONE. [Suspect]
     Active Substance: METHYLPREDNISOLONE
     Dosage: 58 MG
     Route: 048
  3. METHYLPREDNISOLONE. [Suspect]
     Active Substance: METHYLPREDNISOLONE
     Indication: MYASTHENIA GRAVIS
     Dosage: 64 MG
     Route: 048

REACTIONS (10)
  - Fat tissue increased [Unknown]
  - Lens dislocation [Unknown]
  - Off label use [Unknown]
  - Intraocular pressure increased [Unknown]
  - Corneal abrasion [Unknown]
  - Abnormal weight gain [Recovering/Resolving]
  - Cushingoid [Recovering/Resolving]
  - Product use issue [Unknown]
  - Exophthalmos [Unknown]
  - Myopathy [Recovering/Resolving]
